FAERS Safety Report 24704379 (Version 5)
Quarter: 2025Q1

REPORT INFORMATION
  Report Type: Report from Study
  Country: DE (occurrence: DE)
  Receive Date: 20241206
  Receipt Date: 20250319
  Transmission Date: 20250409
  Serious: Yes (Hospitalization, Other)
  Sender: ABBVIE
  Company Number: DE-ABBVIE-6032408

PATIENT
  Age: 78 Year
  Sex: Male

DRUGS (3)
  1. FOSCARBIDOPA\FOSLEVODOPA [Suspect]
     Active Substance: FOSCARBIDOPA\FOSLEVODOPA
     Indication: Parkinson^s disease
     Route: 058
     Dates: start: 20250116
  2. FOSCARBIDOPA\FOSLEVODOPA [Suspect]
     Active Substance: FOSCARBIDOPA\FOSLEVODOPA
     Route: 058
     Dates: start: 20241105, end: 20241111
  3. FOSCARBIDOPA\FOSLEVODOPA [Suspect]
     Active Substance: FOSCARBIDOPA\FOSLEVODOPA
     Route: 058

REACTIONS (11)
  - Bladder cancer [Not Recovered/Not Resolved]
  - General physical health deterioration [Not Recovered/Not Resolved]
  - Device occlusion [Unknown]
  - Cerebral haemorrhage [Unknown]
  - Malaise [Recovered/Resolved]
  - Urosepsis [Recovered/Resolved]
  - Mobility decreased [Not Recovered/Not Resolved]
  - General physical health deterioration [Unknown]
  - Micturition disorder [Unknown]
  - Dehydration [Unknown]
  - Dementia [Unknown]

NARRATIVE: CASE EVENT DATE: 20241101
